FAERS Safety Report 26046197 (Version 1)
Quarter: 2025Q4

REPORT INFORMATION
  Report Type: Spontaneous
  Country: US (occurrence: None)
  Receive Date: 20251113
  Receipt Date: 20251113
  Transmission Date: 20260117
  Serious: Yes (Disabling)
  Sender: FDA-CTU
  Company Number: None

PATIENT
  Age: 76 Year
  Sex: Female
  Weight: 47.17 kg

DRUGS (26)
  1. PROLIA [Suspect]
     Active Substance: DENOSUMAB
  2. EZETIMIBE [Suspect]
     Active Substance: EZETIMIBE
     Indication: Bone density abnormal
     Dates: start: 20250911
  3. VITAMIN B COMPLEX [Concomitant]
     Active Substance: CYANOCOBALAMIN\DEXPANTHENOL\NIACINAMIDE\PYRIDOXINE HYDROCHLORIDE\RIBOFLAVIN 5^-PHOSPHATE SODIUM\THIA
  4. BCA pollen [Concomitant]
  5. CAPSICUM\HERBALS [Concomitant]
     Active Substance: CAPSICUM\HERBALS
  6. INSULIN NOS [Concomitant]
     Active Substance: INSULIN NOS
  7. Co Q10 400 [Concomitant]
  8. CRANBERRY [Concomitant]
     Active Substance: CRANBERRY
  9. VITAMIN D3 [Concomitant]
     Active Substance: CHOLECALCIFEROL
  10. VITAMINS [Concomitant]
     Active Substance: VITAMINS
  11. FISH OIL [Concomitant]
     Active Substance: FISH OIL
  12. K1 B6 [Concomitant]
  13. Lutein-Zeaxanthin vision complex [Concomitant]
  14. MELATONIN [Concomitant]
     Active Substance: MELATONIN
  15. Nicotimamide-flush free B-3 [Concomitant]
  16. PAPAYA [Concomitant]
     Active Substance: PAPAYA
  17. DIETARY SUPPLEMENT [Concomitant]
     Active Substance: DIETARY SUPPLEMENT
  18. HERBALS\TURMERIC [Concomitant]
     Active Substance: HERBALS\TURMERIC
  19. Oreganic Triptiale [Concomitant]
  20. Amcurrentodipinc Besylate 5mg nightly [Concomitant]
  21. DICLOFENAC SODIUM [Concomitant]
     Active Substance: DICLOFENAC SODIUM
  22. IBUPROFEN [Concomitant]
     Active Substance: IBUPROFEN
  23. LATISSE [Concomitant]
     Active Substance: BIMATOPROST
  24. LINZESS [Concomitant]
     Active Substance: LINACLOTIDE
  25. LORAZEPAM [Concomitant]
     Active Substance: LORAZEPAM
  26. Tizaanidine [Concomitant]

REACTIONS (10)
  - Arthralgia [None]
  - Bone pain [None]
  - Muscle spasms [None]
  - Headache [None]
  - Fatigue [None]
  - Nausea [None]
  - Product communication issue [None]
  - Chest pain [None]
  - Respiratory distress [None]
  - Documented hypersensitivity to administered product [None]

NARRATIVE: CASE EVENT DATE: 20250912
